FAERS Safety Report 8322551-X (Version None)
Quarter: 2012Q2

REPORT INFORMATION
  Report Type: 
  Country: None (occurrence: None)
  Receive Date: 20120430
  Receipt Date: 20100211
  Transmission Date: 20120825
  Serious: No
  Sender: FDA-Public Use
  Company Number: US-TEVA-2010000820

PATIENT
  Sex: Female
  Weight: 56.75 kg

DRUGS (1)
  1. NUVIGIL [Suspect]
     Indication: SOMNOLENCE
     Dosage: 125 MILLIGRAM;
     Route: 048
     Dates: start: 20100101

REACTIONS (5)
  - HEADACHE [None]
  - FEELING JITTERY [None]
  - AGITATION [None]
  - DISSOCIATION [None]
  - NERVOUSNESS [None]
